FAERS Safety Report 17779516 (Version 1)
Quarter: 2020Q2

REPORT INFORMATION
  Report Type: Spontaneous
  Country: DE (occurrence: DE)
  Receive Date: 20200513
  Receipt Date: 20200513
  Transmission Date: 20200714
  Serious: Yes (Hospitalization)
  Sender: FDA-Public Use
  Company Number: DE-ANIPHARMA-2020-DE-000095

PATIENT
  Sex: Male

DRUGS (7)
  1. AMLODIPINE [Concomitant]
     Active Substance: AMLODIPINE BESYLATE
     Dosage: 10 MG QD
     Route: 065
     Dates: start: 201611
  2. METOPROLOL SUCCINATE. [Concomitant]
     Active Substance: METOPROLOL SUCCINATE
     Dosage: 47.5 MG UNK /95 MG UNK
     Route: 065
  3. SIMVASTATIN. [Concomitant]
     Active Substance: SIMVASTATIN
     Dosage: 20 MG QD
     Route: 065
     Dates: start: 201611
  4. BRILIQUE [Concomitant]
     Active Substance: TICAGRELOR
     Dosage: 90 MG UNK
     Route: 048
     Dates: start: 20161114, end: 201711
  5. CANDESARTAN. [Suspect]
     Active Substance: CANDESARTAN
     Indication: HYPERTENSION
     Dosage: 32 MG UNK
     Route: 048
     Dates: start: 20180925
  6. VALSARTAN. [Suspect]
     Active Substance: VALSARTAN
     Dosage: 160 MG UNK /320 MG UNK?
     Route: 065
     Dates: start: 20150910
  7. ASPIRIN. [Concomitant]
     Active Substance: ASPIRIN
     Dosage: UNK
     Route: 065
     Dates: start: 201611

REACTIONS (7)
  - Acute myocardial infarction [Unknown]
  - Hyperlipidaemia [Unknown]
  - Anxiety [Unknown]
  - Coronary artery stenosis [Unknown]
  - Emotional distress [Unknown]
  - Mitral valve incompetence [Unknown]
  - Carotid arteriosclerosis [Unknown]
